FAERS Safety Report 10739662 (Version 2)
Quarter: 2015Q1

REPORT INFORMATION
  Report Type: Spontaneous
  Country: US (occurrence: US)
  Receive Date: 20150127
  Receipt Date: 20150127
  Transmission Date: 20150721
  Serious: Yes (Other)
  Sender: FDA-Public Use
  Company Number: US-JNJFOC-20150110397

PATIENT
  Age: 15 Year
  Sex: Female

DRUGS (2)
  1. TYLENOL ANALGESIC UNKNOWN [Suspect]
     Active Substance: ACETAMINOPHEN
     Route: 048
  2. TYLENOL ANALGESIC UNKNOWN [Suspect]
     Active Substance: ACETAMINOPHEN
     Indication: SUICIDE ATTEMPT
     Route: 048
     Dates: start: 20070620, end: 20070620

REACTIONS (2)
  - Overdose [Recovered/Resolved]
  - Vomiting [Recovered/Resolved]

NARRATIVE: CASE EVENT DATE: 20070620
